FAERS Safety Report 8472941-X (Version None)
Quarter: 2012Q2

REPORT INFORMATION
  Report Type: 
  Country: None (occurrence: None)
  Receive Date: 20120627
  Receipt Date: 20120620
  Transmission Date: 20120825
  Serious: Yes (Other)
  Sender: FDA-Public Use
  Company Number: US-BAXTER-2012BAX009275

PATIENT
  Age: 38 Year
  Sex: Female

DRUGS (2)
  1. TRETINOIN [Interacting]
  2. FLUCONAZOLE [Suspect]

REACTIONS (2)
  - DRUG INTERACTION [None]
  - BENIGN INTRACRANIAL HYPERTENSION [None]
